FAERS Safety Report 24094069 (Version 1)
Quarter: 2024Q3

REPORT INFORMATION
  Report Type: Report from Study
  Country: CO (occurrence: None)
  Receive Date: 20240716
  Receipt Date: 20240716
  Transmission Date: 20241017
  Serious: Yes (Hospitalization)
  Sender: ASTRAZENECA
  Company Number: 2019SF76284

PATIENT
  Age: 25182 Day
  Sex: Male

DRUGS (1)
  1. SYMBICORT [Suspect]
     Active Substance: BUDESONIDE\FORMOTEROL FUMARATE DIHYDRATE
     Indication: Asthma
     Dosage: 320 MCG, UNKNOWN UNKNOWN
     Route: 055
     Dates: start: 20140123

REACTIONS (2)
  - Diabetic foot [Unknown]
  - Abscess limb [Unknown]

NARRATIVE: CASE EVENT DATE: 20191030
